FAERS Safety Report 17203562 (Version 5)
Quarter: 2020Q4

REPORT INFORMATION
  Report Type: Spontaneous
  Country: US (occurrence: US)
  Receive Date: 20191226
  Receipt Date: 20201216
  Transmission Date: 20210113
  Serious: No
  Sender: FDA-Public Use
  Company Number: US-CATALYST PHARMACEUTICALS, INC-2019CAT00391

PATIENT
  Sex: Female
  Weight: 95.69 kg

DRUGS (29)
  1. FIRDAPSE [Suspect]
     Active Substance: AMIFAMPRIDINE PHOSPHATE
     Dosage: 20 MG, 3X/DAY
     Route: 048
  2. FUROSEMIDE. [Concomitant]
     Active Substance: FUROSEMIDE
  3. VITAMIN B12 [Concomitant]
     Active Substance: CYANOCOBALAMIN
  4. ^MENTION^ (PRESUMED MESTINON) [Concomitant]
  5. PREDNISONE. [Concomitant]
     Active Substance: PREDNISONE
  6. MUCINEX [Concomitant]
     Active Substance: GUAIFENESIN
     Indication: SEASONAL ALLERGY
  7. NEXIUM [Concomitant]
     Active Substance: ESOMEPRAZOLE MAGNESIUM
  8. SINGULAIR [Concomitant]
     Active Substance: MONTELUKAST SODIUM
  9. WARFARIN [Concomitant]
     Active Substance: WARFARIN
  10. AZATHIOPRINE. [Concomitant]
     Active Substance: AZATHIOPRINE
  11. L-THYROXINE [Concomitant]
     Active Substance: LEVOTHYROXINE
  12. METROGEL [Concomitant]
     Active Substance: METRONIDAZOLE
  13. VITAMIN C [Concomitant]
     Active Substance: ASCORBIC ACID
  14. FOLIC ACID. [Concomitant]
     Active Substance: FOLIC ACID
  15. IRON [Concomitant]
     Active Substance: IRON
  16. BIOTIN [Concomitant]
     Active Substance: BIOTIN
  17. POTASSIUM CHLORIDE. [Concomitant]
     Active Substance: POTASSIUM CHLORIDE
  18. FIRDAPSE [Suspect]
     Active Substance: AMIFAMPRIDINE PHOSPHATE
     Dosage: 20 MG, 3X/DAY
     Route: 048
     Dates: start: 201907
  19. FIRDAPSE [Suspect]
     Active Substance: AMIFAMPRIDINE PHOSPHATE
     Indication: MYASTHENIC SYNDROME
     Dosage: 10 MG, 3X/DAY
     Route: 048
     Dates: start: 2019, end: 201907
  20. ZOFRAN [Concomitant]
     Active Substance: ONDANSETRON HYDROCHLORIDE
  21. ALBUTEROL. [Concomitant]
     Active Substance: ALBUTEROL
  22. GABAPENTIN. [Concomitant]
     Active Substance: GABAPENTIN
  23. MELATONIN [Concomitant]
     Active Substance: MELATONIN
  24. ADVAIR DISKUS [Concomitant]
     Active Substance: FLUTICASONE PROPIONATE\SALMETEROL XINAFOATE
  25. CALTRATE [Concomitant]
     Active Substance: CALCIUM CARBONATE
  26. IVIG [Concomitant]
     Active Substance: HUMAN IMMUNOGLOBULIN G
     Dosage: UNK, 4X/YEAR (EVERY 3 MONTHS)
  27. METOPROLOL. [Concomitant]
     Active Substance: METOPROLOL
  28. PRAVASTATIN. [Concomitant]
     Active Substance: PRAVASTATIN
  29. MIDODRINE [Concomitant]
     Active Substance: MIDODRINE

REACTIONS (7)
  - Hypoaesthesia [Not Recovered/Not Resolved]
  - Paraesthesia [Not Recovered/Not Resolved]
  - Blood pressure increased [Not Recovered/Not Resolved]
  - Hypoaesthesia oral [Not Recovered/Not Resolved]
  - Musculoskeletal chest pain [Not Recovered/Not Resolved]
  - Peripheral swelling [Not Recovered/Not Resolved]
  - Fall [Recovered/Resolved]

NARRATIVE: CASE EVENT DATE: 2019
